FAERS Safety Report 11787211 (Version 1)
Quarter: 2015Q4

REPORT INFORMATION
  Report Type: Spontaneous
  Country: JP (occurrence: JP)
  Receive Date: 20151130
  Receipt Date: 20151130
  Transmission Date: 20160305
  Serious: Yes (Hospitalization, Disabling, Other)
  Sender: FDA-Public Use
  Company Number: JP-PFIZER INC-2015357207

PATIENT
  Age: 73 Year
  Sex: Male
  Weight: 76.5 kg

DRUGS (2)
  1. INLYTA [Suspect]
     Active Substance: AXITINIB
     Dosage: UNK
     Route: 048
     Dates: end: 20150912
  2. INLYTA [Suspect]
     Active Substance: AXITINIB
     Indication: RENAL CELL CARCINOMA
     Dosage: 10 MG, 1X/DAY
     Route: 048
     Dates: start: 20140410

REACTIONS (30)
  - Pain in extremity [Unknown]
  - Haemorrhoids [Unknown]
  - Renal cancer [Unknown]
  - Dizziness [Unknown]
  - Hyperkeratosis [Unknown]
  - Skin induration [Unknown]
  - Stomatitis [Unknown]
  - C-reactive protein increased [Unknown]
  - Hypertension [Unknown]
  - Dysphonia [Unknown]
  - Weight decreased [Unknown]
  - Constipation [Unknown]
  - Diarrhoea [Unknown]
  - Nasopharyngitis [Unknown]
  - Urethritis [Not Recovered/Not Resolved]
  - Erysipelas [Unknown]
  - Decreased appetite [Unknown]
  - Hyperuricaemia [Unknown]
  - Oral pain [Unknown]
  - Hypoalbuminaemia [Unknown]
  - Blister [Unknown]
  - Disease progression [Unknown]
  - Hypothyroidism [Unknown]
  - Glossodynia [Unknown]
  - Occult blood positive [Unknown]
  - Tinea pedis [Unknown]
  - Oedema peripheral [Unknown]
  - Hyperkeratosis [Unknown]
  - Haematochezia [Unknown]
  - Blood pressure decreased [Unknown]

NARRATIVE: CASE EVENT DATE: 2014
